FAERS Safety Report 5511752-1 (Version None)
Quarter: 2007Q4

REPORT INFORMATION
  Report Type: 
  Country: None (occurrence: None)
  Receive Date: 20071109
  Receipt Date: 20071029
  Transmission Date: 20080405
  Serious: Yes (Hospitalization, Other)
  Sender: FDA-Public Use
  Company Number: US-PFIZER INC-2007081948

PATIENT
  Sex: Male
  Weight: 81.6 kg

DRUGS (6)
  1. CHANTIX [Suspect]
     Indication: SMOKING CESSATION THERAPY
     Dosage: FREQ:EVERY DAY
     Route: 048
     Dates: start: 20070901, end: 20070901
  2. FENTANYL [Concomitant]
  3. OXYCONTIN [Concomitant]
  4. VALIUM [Concomitant]
  5. MULTIVITAMINS WITH MINERALS [Concomitant]
  6. COLACE [Concomitant]

REACTIONS (11)
  - DECREASED APPETITE [None]
  - FEELING ABNORMAL [None]
  - HEPATIC NEOPLASM [None]
  - IMPAIRED DRIVING ABILITY [None]
  - MALAISE [None]
  - MENTAL IMPAIRMENT [None]
  - RESTLESSNESS [None]
  - STOMACH DISCOMFORT [None]
  - SUICIDAL IDEATION [None]
  - THINKING ABNORMAL [None]
  - WITHDRAWAL SYNDROME [None]
